FAERS Safety Report 9136409 (Version 1)
Quarter: 2013Q1

REPORT INFORMATION
  Report Type: Spontaneous
  Country: US (occurrence: US)
  Receive Date: 20130219
  Receipt Date: 20130219
  Transmission Date: 20140127
  Serious: No
  Sender: FDA-Public Use
  Company Number: US-BRISTOL-MYERS SQUIBB COMPANY-16833352

PATIENT
  Age: 54 Year
  Sex: Female
  Weight: 95 kg

DRUGS (3)
  1. ABATACEPT SUBQ INJECTION 125MG/ML [Suspect]
     Indication: RHEUMATOID ARTHRITIS
     Dosage: 1 DF= 125 MG/ML?INITIALLY IV;SEP06 TO APR12.
     Route: 058
     Dates: start: 201204
  2. ORENCIA [Suspect]
     Indication: RHEUMATOID ARTHRITIS
     Route: 042
     Dates: start: 200609, end: 201204
  3. PREDNISONE [Concomitant]

REACTIONS (2)
  - Drug dose omission [Unknown]
  - Drug ineffective [Unknown]
